FAERS Safety Report 7738641-6 (Version None)
Quarter: 2011Q3

REPORT INFORMATION
  Report Type: 
  Country: None (occurrence: None)
  Receive Date: 20110908
  Receipt Date: 20110906
  Transmission Date: 20111222
  Serious: Yes (Death)
  Sender: FDA-Public Use
  Company Number: GB-ABBOTT-11P-167-0848917-00

PATIENT
  Weight: 64 kg

DRUGS (4)
  1. NORVIR [Suspect]
     Indication: DRUG INTERACTION
     Dosage: 100 MG DAILY
     Route: 048
     Dates: start: 20090427, end: 20110715
  2. RALTEGRAVIR POTASSIUM [Concomitant]
     Indication: HIV INFECTION
     Route: 048
     Dates: start: 20090401, end: 20110701
  3. ATAZANAVIR [Concomitant]
     Indication: HIV INFECTION
     Dosage: 300 MG DAILY
     Route: 048
     Dates: start: 20090401, end: 20110701
  4. MARAVIROC [Concomitant]
     Indication: HIV INFECTION
     Route: 048
     Dates: start: 20090401, end: 20110701

REACTIONS (1)
  - HEPATIC STEATOSIS [None]
